FAERS Safety Report 7069137-5 (Version None)
Quarter: 2010Q4

REPORT INFORMATION
  Report Type: 
  Country: None (occurrence: None)
  Receive Date: 20101028
  Receipt Date: 20101022
  Transmission Date: 20110411
  Serious: Yes (Hospitalization)
  Sender: FDA-Public Use
  Company Number: A0888940A

PATIENT
  Age: 76 Year
  Sex: Male
  Weight: 110.5 kg

DRUGS (2)
  1. LAPATINIB [Suspect]
     Indication: NEOPLASM
     Dosage: 1250MG PER DAY
     Route: 048
     Dates: start: 20101014
  2. CAPECITABINE [Suspect]
     Indication: NEOPLASM
     Dosage: 2000MGM2 TWICE PER DAY
     Dates: start: 20101014

REACTIONS (1)
  - CHEST PAIN [None]
